FAERS Safety Report 20416781 (Version 1)
Quarter: 2022Q1

REPORT INFORMATION
  Report Type: Spontaneous
  Country: CA (occurrence: CA)
  Receive Date: 20220202
  Receipt Date: 20220202
  Transmission Date: 20220424
  Serious: Yes (Death, Other)
  Sender: FDA-Public Use
  Company Number: CA-NAPPMUNDI-GBR-2022-0094657

PATIENT
  Age: 68 Year
  Sex: Male

DRUGS (4)
  1. MORPHINE SULFATE [Suspect]
     Active Substance: MORPHINE SULFATE
     Indication: Arthralgia
     Dosage: UNK
     Route: 065
  2. SANDOSTATIN [Suspect]
     Active Substance: OCTREOTIDE ACETATE
     Indication: Pancreatic neuroendocrine tumour
     Dosage: 30 MG, MONTHLY
     Route: 030
  3. ZOMETA [Suspect]
     Active Substance: ZOLEDRONIC ACID
     Indication: Product used for unknown indication
     Dosage: UNK
     Route: 065
  4. ASPIRIN                            /00002701/ [Concomitant]
     Indication: Product used for unknown indication
     Dosage: UNK
     Route: 048

REACTIONS (13)
  - Death [Fatal]
  - Arthralgia [Fatal]
  - Asthenia [Fatal]
  - Blood pressure increased [Fatal]
  - Chills [Fatal]
  - Decreased appetite [Fatal]
  - Fatigue [Fatal]
  - Malignant neoplasm progression [Fatal]
  - Musculoskeletal chest pain [Fatal]
  - Nausea [Fatal]
  - Pancreatic neuroendocrine tumour [Fatal]
  - Pyrexia [Fatal]
  - Weight decreased [Fatal]
